FAERS Safety Report 5271877-5 (Version None)
Quarter: 2007Q1

REPORT INFORMATION
  Report Type: 
  Country: None (occurrence: None)
  Receive Date: 20070316
  Receipt Date: 20070301
  Transmission Date: 20070707
  Serious: Yes (Other)
  Sender: FDA-Public Use
  Company Number: 2007000390

PATIENT
  Age: 42 Year
  Sex: Male

DRUGS (1)
  1. TARCEVA [Suspect]
     Indication: LUNG NEOPLASM MALIGNANT
     Dosage: 150 MG (QD); ORAL
     Route: 048
     Dates: start: 20070125, end: 20070209

REACTIONS (5)
  - ACNE [None]
  - DEPRESSION [None]
  - ERYTHEMA [None]
  - HAEMORRHAGE [None]
  - RASH [None]
